FAERS Safety Report 10056882 (Version 4)
Quarter: 2014Q2

REPORT INFORMATION
  Report Type: Report from Study
  Country: CA (occurrence: CA)
  Receive Date: 20140403
  Receipt Date: 20140501
  Transmission Date: 20141212
  Serious: Yes (Hospitalization, Other)
  Sender: FDA-Public Use
  Company Number: CA-JNJFOC-20140318276

PATIENT
  Age: 42 Year
  Sex: Female
  Weight: 96.4 kg

DRUGS (6)
  1. REMICADE [Suspect]
     Indication: CROHN^S DISEASE
     Route: 042
     Dates: start: 20111229
  2. REMICADE [Suspect]
     Indication: CROHN^S DISEASE
     Route: 042
     Dates: start: 20140425
  3. REMICADE [Suspect]
     Indication: CROHN^S DISEASE
     Dosage: 5 MG/KG
     Route: 042
     Dates: start: 20120103
  4. REMICADE [Suspect]
     Indication: CROHN^S DISEASE
     Dosage: 5 MG/KG
     Route: 042
     Dates: start: 20120108
  5. LOMOTIL [Concomitant]
     Route: 065
  6. MAXERAN [Concomitant]
     Route: 065

REACTIONS (5)
  - Cholecystitis acute [Unknown]
  - Abscess [Unknown]
  - Gilbert^s syndrome [Recovering/Resolving]
  - Postoperative wound infection [Recovered/Resolved]
  - Sinusitis [Unknown]
